FAERS Safety Report 23265029 (Version 1)
Quarter: 2023Q4

REPORT INFORMATION
  Report Type: Spontaneous
  Country: US (occurrence: US)
  Receive Date: 20231206
  Receipt Date: 20231206
  Transmission Date: 20240110
  Serious: No
  Sender: FDA-Public Use
  Company Number: None

PATIENT
  Age: 74 Year
  Sex: Female

DRUGS (4)
  1. GABAPENTIN [Suspect]
     Active Substance: GABAPENTIN
     Indication: Small fibre neuropathy
     Dosage: 4500 MILLIGRAM, QD (DAILY), HIGH DOSE
     Route: 065
     Dates: start: 20080101
  2. GABAPENTIN [Suspect]
     Active Substance: GABAPENTIN
     Indication: Peripheral sensory neuropathy
  3. CYMBALTA [Concomitant]
     Active Substance: DULOXETINE HYDROCHLORIDE
     Indication: Peripheral sensory neuropathy
     Dosage: 90 MILLIGRAM, QD (PER DAY)
     Route: 065
     Dates: start: 20080101
  4. CYMBALTA [Concomitant]
     Active Substance: DULOXETINE HYDROCHLORIDE
     Dosage: 120 MILLIGRAM, QD (PER DAY)
     Route: 065
     Dates: start: 20080101

REACTIONS (4)
  - Brain fog [Unknown]
  - Memory impairment [Unknown]
  - Headache [Unknown]
  - Weight increased [Unknown]
